FAERS Safety Report 20944675 (Version 1)
Quarter: 2022Q2

REPORT INFORMATION
  Report Type: Spontaneous
  Country: US (occurrence: None)
  Receive Date: 20220609
  Receipt Date: 20220609
  Transmission Date: 20220721
  Serious: Yes (Hospitalization)
  Sender: FDA-Public Use
  Company Number: None

PATIENT
  Age: 68 Year
  Sex: Female
  Weight: 162.2 kg

DRUGS (34)
  1. PROMACTA [Suspect]
     Active Substance: ELTROMBOPAG OLAMINE
     Indication: Non-Hodgkin^s lymphoma
     Dosage: 50MG DAILY ORAL?
     Route: 048
  2. EPIPEN [Concomitant]
     Active Substance: EPINEPHRINE
  3. LEVOTHYROXINE S [Concomitant]
  4. ALLOPURINOL [Concomitant]
     Active Substance: ALLOPURINOL
  5. GABAPENTIN [Concomitant]
     Active Substance: GABAPENTIN
  6. PREDNISONE [Concomitant]
     Active Substance: PREDNISONE
  7. PRAVASTATIN [Concomitant]
     Active Substance: PRAVASTATIN
  8. FUROSEMIDE [Concomitant]
     Active Substance: FUROSEMIDE
  9. LEXAPRO [Concomitant]
     Active Substance: ESCITALOPRAM OXALATE
  10. METHOCARBAMOL [Concomitant]
     Active Substance: METHOCARBAMOL
  11. LEVSIN [Concomitant]
     Active Substance: HYOSCYAMINE SULFATE
  12. TRAMADOL [Concomitant]
     Active Substance: TRAMADOL
  13. NORCO [Concomitant]
     Active Substance: ACETAMINOPHEN\HYDROCODONE BITARTRATE
  14. ZOFRAN [Concomitant]
     Active Substance: ONDANSETRON HYDROCHLORIDE
  15. ALPRAZOLAM [Concomitant]
  16. BIO-ACTIVE SILVER HYDROSOL [Concomitant]
  17. MAGNESIUM [Concomitant]
     Active Substance: MAGNESIUM
  18. CALCIUM CARBONATE\VITAMIN D [Concomitant]
     Active Substance: CALCIUM CARBONATE\VITAMIN D
  19. VITAMIN C [Concomitant]
     Active Substance: ASCORBIC ACID
  20. OMEGA 3 [Concomitant]
     Active Substance: CAPSAICIN
  21. COENZYME Q10 [Concomitant]
     Active Substance: DIETARY SUPPLEMENT\UBIDECARENONE
  22. VITAMIN B [Concomitant]
     Active Substance: VITAMIN B
  23. LEVOMEFOLIC ACID [Concomitant]
     Active Substance: LEVOMEFOLIC ACID
  24. BIOTIN [Concomitant]
     Active Substance: BIOTIN
  25. ZINC [Concomitant]
     Active Substance: ZINC
  26. GLUCONATE [Concomitant]
  27. VITAMIN D3 [Concomitant]
     Active Substance: CHOLECALCIFEROL
  28. MULTIVITAMIN ADULTS [Concomitant]
  29. QUERCETIN [Concomitant]
     Active Substance: QUERCETIN
  30. TACROLIMUS [Concomitant]
     Active Substance: TACROLIMUS
  31. LOPRESSOR [Concomitant]
     Active Substance: METOPROLOL TARTRATE
  32. DIGOXIN [Concomitant]
     Active Substance: DIGOXIN
  33. REVLIMID [Concomitant]
     Active Substance: LENALIDOMIDE
  34. ENTECAVIR [Concomitant]
     Active Substance: ENTECAVIR

REACTIONS (1)
  - White blood cell count decreased [None]
